FAERS Safety Report 11193531 (Version 1)
Quarter: 2015Q2

REPORT INFORMATION
  Report Type: Spontaneous
  Country: US (occurrence: US)
  Receive Date: 20150616
  Receipt Date: 20150616
  Transmission Date: 20150821
  Serious: No
  Sender: FDA-Public Use
  Company Number: US-009507513-1506USA001933

PATIENT

DRUGS (1)
  1. NOXAFIL [Suspect]
     Active Substance: POSACONAZOLE
     Indication: PROPHYLAXIS
     Dosage: 600-800 MG/DAY (200MG THRICE DAILY OR 400MG TWICE DAILY).
     Dates: start: 200802, end: 201312

REACTIONS (1)
  - Hepatotoxicity [Unknown]
